FAERS Safety Report 5482573-3 (Version None)
Quarter: 2007Q4

REPORT INFORMATION
  Report Type: 
  Country: None (occurrence: None)
  Receive Date: 20071011
  Receipt Date: 20070814
  Transmission Date: 20080405
  Serious: No
  Sender: FDA-Public Use
  Company Number: A0664307A

PATIENT
  Age: 54 Year
  Sex: Female
  Weight: 51.8 kg

DRUGS (6)
  1. TYKERB [Suspect]
     Indication: BREAST CANCER
     Dosage: 1250MG PER DAY
     Route: 048
     Dates: start: 20070711
  2. XELODA [Concomitant]
  3. DEXAMETHASONE 0.5MG TAB [Concomitant]
  4. STOOL SOFTENER [Concomitant]
  5. B6 VITAMIN [Concomitant]
  6. VICODIN [Concomitant]

REACTIONS (2)
  - ABDOMINAL PAIN UPPER [None]
  - DIARRHOEA [None]
